FAERS Safety Report 4783864-1 (Version None)
Quarter: 2005Q3

REPORT INFORMATION
  Report Type: 
  Country: None (occurrence: None)
  Receive Date: 20050929
  Receipt Date: 20050303
  Transmission Date: 20060218
  Serious: Yes (Hospitalization, Disabling, Other)
  Sender: FDA-Public Use
  Company Number: US-MERCK-0503USA00837

PATIENT
  Age: 51 Year
  Sex: Male
  Weight: 103 kg

DRUGS (8)
  1. VIOXX [Suspect]
     Indication: RHEUMATOID ARTHRITIS
     Route: 048
     Dates: start: 20000818, end: 20030101
  2. ASPIRIN [Concomitant]
     Route: 048
     Dates: start: 20010101
  3. ISOSORBIDE MONONITRATE [Concomitant]
     Route: 048
  4. ZOCOR [Concomitant]
     Route: 048
  5. SULAR [Concomitant]
     Route: 048
  6. HYDROCHLOROTHIAZIDE [Concomitant]
     Route: 048
  7. MICRO-K [Concomitant]
     Route: 048
  8. PEPCID [Concomitant]
     Route: 048

REACTIONS (37)
  - ANGINA UNSTABLE [None]
  - ANHEDONIA [None]
  - ANKLE FRACTURE [None]
  - ANXIETY DISORDER [None]
  - ATHEROSCLEROSIS [None]
  - BLOOD CHOLESTEROL INCREASED [None]
  - BLOOD TRIGLYCERIDES INCREASED [None]
  - CARDIAC FAILURE CONGESTIVE [None]
  - CARDIAC VALVE DISEASE [None]
  - CHEST DISCOMFORT [None]
  - CHEST PAIN [None]
  - CHRONIC FATIGUE SYNDROME [None]
  - CHRONIC OBSTRUCTIVE PULMONARY DISEASE [None]
  - CORONARY ARTERY DISEASE [None]
  - DEPRESSION [None]
  - DIABETES MELLITUS [None]
  - DRUG HYPERSENSITIVITY [None]
  - DYSPEPSIA [None]
  - DYSPNOEA [None]
  - FATIGUE [None]
  - GASTRIC PH DECREASED [None]
  - GASTROINTESTINAL DISORDER [None]
  - GASTROOESOPHAGEAL REFLUX DISEASE [None]
  - HEART DISEASE CONGENITAL [None]
  - HEART RATE IRREGULAR [None]
  - HOMOCYSTINAEMIA [None]
  - HYPERTENSION [None]
  - HYPOKALAEMIA [None]
  - HYPOXIA [None]
  - LEFT VENTRICULAR FAILURE [None]
  - MASS [None]
  - MYOCARDIAL INFARCTION [None]
  - NODAL ARRHYTHMIA [None]
  - PANIC DISORDER [None]
  - PERIPHERAL VASCULAR DISORDER [None]
  - POST-TRAUMATIC STRESS DISORDER [None]
  - SILENT MYOCARDIAL INFARCTION [None]
